FAERS Safety Report 8346672-0 (Version None)
Quarter: 2012Q2

REPORT INFORMATION
  Report Type: 
  Country: None (occurrence: None)
  Receive Date: 20120509
  Receipt Date: 20120507
  Transmission Date: 20120825
  Serious: Yes (Other)
  Sender: FDA-Public Use
  Company Number: PHHY2012BE038647

PATIENT
  Age: 55 Year
  Sex: Female

DRUGS (4)
  1. FEMARA [Suspect]
     Indication: BREAST CANCER
     Dosage: 2.5 MG, UNK
     Dates: start: 20081101
  2. GLUCOVANCE [Concomitant]
     Indication: DIABETES MELLITUS
  3. SIMVASTATIN [Concomitant]
     Indication: HYPERCHOLESTEROLAEMIA
     Dosage: 80 MG, UNK
  4. TELMISARTAN [Concomitant]
     Indication: HYPERTENSION

REACTIONS (7)
  - DIZZINESS [None]
  - ARTHROPOD STING [None]
  - ARTHRALGIA [None]
  - VIITH NERVE PARALYSIS [None]
  - SPEECH DISORDER [None]
  - HYPOKINESIA [None]
  - MALAISE [None]
